FAERS Safety Report 9543612 (Version 4)
Quarter: 2013Q4

REPORT INFORMATION
  Report Type: Spontaneous
  Country: GB (occurrence: GB)
  Receive Date: 20130923
  Receipt Date: 20131125
  Transmission Date: 20140711
  Serious: Yes (Death)
  Sender: FDA-Public Use
  Company Number: GB-MALLINCKRODT-T201304339

PATIENT
  Age: 69 Year
  Sex: Female
  Weight: 46.2 kg

DRUGS (1)
  1. OPTIRAY 300 [Suspect]
     Indication: COMPUTERISED TOMOGRAM
     Dosage: 69 ML, SINGLE, 3ML/SEC
     Route: 042
     Dates: start: 20130806, end: 20130806

REACTIONS (1)
  - Anaphylactic reaction [Fatal]
